FAERS Safety Report 9284024 (Version 3)
Quarter: 2013Q4

REPORT INFORMATION
  Report Type: Spontaneous
  Country: US (occurrence: US)
  Receive Date: 20130510
  Receipt Date: 20131217
  Transmission Date: 20140711
  Serious: Yes (Hospitalization)
  Sender: FDA-Public Use
  Company Number: US-BAYER-2013-058037

PATIENT
  Age: 21 Year
  Sex: Female
  Weight: 74 kg

DRUGS (12)
  1. YASMIN [Suspect]
     Indication: MENORRHAGIA
     Dosage: UNK
     Dates: start: 2006, end: 2008
  2. YASMIN [Suspect]
     Indication: DYSMENORRHOEA
  3. YASMIN [Suspect]
     Indication: CONTRACEPTION
  4. YASMIN [Suspect]
     Indication: MENSTRUAL CYCLE MANAGEMENT
  5. OCELLA [Suspect]
     Indication: DYSMENORRHOEA
     Dosage: UNK
     Dates: start: 2008, end: 2011
  6. OCELLA [Suspect]
     Indication: MENSTRUAL CYCLE MANAGEMENT
  7. ZOLOFT [Concomitant]
     Dosage: 100 MG, QD
     Route: 048
  8. LAMICTAL [Concomitant]
     Dosage: 25 MG, TID
     Route: 048
  9. SINGULAIR [Concomitant]
     Dosage: 10 MG, UNK
     Route: 048
  10. MULTIVITAMIN [Concomitant]
     Dosage: 1 TAB
     Route: 048
  11. BENTYL [Concomitant]
     Dosage: 10 MG, QID, PRN
     Route: 048
  12. PROVENTIL [Concomitant]
     Dosage: PRN

REACTIONS (11)
  - Pulmonary embolism [Recovered/Resolved]
  - Pain [Recovered/Resolved]
  - Abdominal pain [None]
  - Injury [Recovered/Resolved]
  - General physical health deterioration [Recovered/Resolved]
  - Anxiety [None]
  - Emotional distress [None]
  - Pain [None]
  - Chest pain [Recovered/Resolved]
  - Dyspnoea [Recovered/Resolved]
  - Off label use [None]
